FAERS Safety Report 5421115-5 (Version None)
Quarter: 2007Q3

REPORT INFORMATION
  Report Type: 
  Country: None (occurrence: None)
  Receive Date: 20070821
  Receipt Date: 20070813
  Transmission Date: 20080115
  Serious: Yes (Other)
  Sender: FDA-Public Use
  Company Number: FR-GENENTECH-243785

PATIENT
  Sex: Female
  Weight: 60 kg

DRUGS (4)
  1. XOLAIR [Suspect]
     Indication: ASTHMA
     Dosage: 300 MG, 1/MONTH
     Route: 058
     Dates: start: 20070126, end: 20070530
  2. SERETIDE DISKUS [Concomitant]
     Indication: DRUG USE FOR UNKNOWN INDICATION
  3. AIROMIR [Concomitant]
     Indication: DRUG USE FOR UNKNOWN INDICATION
  4. SOLU-MEDROL [Concomitant]
     Indication: DRUG USE FOR UNKNOWN INDICATION

REACTIONS (4)
  - ASTHENIA [None]
  - MUSCLE STRAIN [None]
  - PHLEBITIS DEEP [None]
  - WEIGHT INCREASED [None]
